FAERS Safety Report 7092793-2 (Version None)
Quarter: 2010Q4

REPORT INFORMATION
  Report Type: 
  Country: None (occurrence: None)
  Receive Date: 20101110
  Receipt Date: 20101105
  Transmission Date: 20110411
  Serious: Yes (Other)
  Sender: FDA-Public Use
  Company Number: US-PFIZER INC-2010142457

PATIENT
  Sex: Male
  Weight: 72.562 kg

DRUGS (4)
  1. CHANTIX [Suspect]
     Indication: SMOKING CESSATION THERAPY
     Dosage: 1 MG, 2X/DAY
     Route: 048
     Dates: start: 20101028
  2. PERCOCET [Concomitant]
     Indication: PAIN
     Dosage: 10/325
     Route: 048
  3. FEXOFENADINE [Concomitant]
     Dosage: 60 MG, UNK
  4. ANDROGEL [Concomitant]
     Indication: BLOOD TESTOSTERONE DECREASED
     Dosage: 50 MG, UNK
     Route: 061

REACTIONS (1)
  - SWELLING FACE [None]
